FAERS Safety Report 24645850 (Version 1)
Quarter: 2024Q4

REPORT INFORMATION
  Report Type: Spontaneous
  Country: FR (occurrence: FR)
  Receive Date: 20241121
  Receipt Date: 20241121
  Transmission Date: 20250115
  Serious: Yes (Other)
  Sender: ACCORD
  Company Number: None

PATIENT
  Age: 76 Year
  Sex: Female
  Weight: 92.7 kg

DRUGS (24)
  1. CARBOPLATIN [Suspect]
     Active Substance: CARBOPLATIN
     Indication: Papillary serous endometrial carcinoma
     Dates: start: 20240913, end: 20240913
  2. PACLITAXEL [Suspect]
     Active Substance: PACLITAXEL
     Indication: Papillary serous endometrial carcinoma
     Dates: start: 20240913, end: 20240913
  3. DOSTARLIMAB [Suspect]
     Active Substance: DOSTARLIMAB
     Indication: Papillary serous endometrial carcinoma
     Dosage: JEMPERLI
     Dates: start: 20240903, end: 20240903
  4. PACLITAXEL [Suspect]
     Active Substance: PACLITAXEL
     Indication: Papillary serous endometrial carcinoma
     Dates: start: 20240903, end: 20240903
  5. CARBOPLATIN [Suspect]
     Active Substance: CARBOPLATIN
     Indication: Papillary serous endometrial carcinoma
     Dates: start: 20240820, end: 20240820
  6. CARBOPLATIN [Suspect]
     Active Substance: CARBOPLATIN
     Indication: Papillary serous endometrial carcinoma
     Dates: start: 20240702, end: 20240702
  7. PACLITAXEL [Suspect]
     Active Substance: PACLITAXEL
     Indication: Papillary serous endometrial carcinoma
     Dates: start: 20240827, end: 20240827
  8. PACLITAXEL [Suspect]
     Active Substance: PACLITAXEL
     Indication: Papillary serous endometrial carcinoma
     Dates: start: 20240820, end: 20240820
  9. PACLITAXEL [Suspect]
     Active Substance: PACLITAXEL
     Indication: Papillary serous endometrial carcinoma
     Dates: start: 20240813, end: 20240813
  10. PACLITAXEL [Suspect]
     Active Substance: PACLITAXEL
     Indication: Papillary serous endometrial carcinoma
     Dates: start: 20240723, end: 20240723
  11. PACLITAXEL [Suspect]
     Active Substance: PACLITAXEL
     Indication: Papillary serous endometrial carcinoma
     Dates: start: 20240716, end: 20240716
  12. PACLITAXEL [Suspect]
     Active Substance: PACLITAXEL
     Indication: Papillary serous endometrial carcinoma
     Dates: start: 20240709, end: 20240709
  13. PACLITAXEL [Suspect]
     Active Substance: PACLITAXEL
     Indication: Papillary serous endometrial carcinoma
     Dates: start: 20240702, end: 20240702
  14. PACLITAXEL [Suspect]
     Active Substance: PACLITAXEL
     Indication: Papillary serous endometrial carcinoma
     Dates: start: 20240625, end: 20240625
  15. DOSTARLIMAB [Suspect]
     Active Substance: DOSTARLIMAB
     Indication: Papillary serous endometrial carcinoma
     Dosage: JEMPERLI
     Dates: start: 20240813, end: 20240813
  16. DOSTARLIMAB [Suspect]
     Active Substance: DOSTARLIMAB
     Indication: Papillary serous endometrial carcinoma
     Dosage: JEMPERLI
     Dates: start: 20240716, end: 20240716
  17. DOSTARLIMAB [Suspect]
     Active Substance: DOSTARLIMAB
     Indication: Papillary serous endometrial carcinoma
     Dosage: JEMPERLI
     Dates: start: 20240625, end: 20240625
  18. CARBOPLATIN [Suspect]
     Active Substance: CARBOPLATIN
     Indication: Papillary serous endometrial carcinoma
     Dates: start: 20240903, end: 20240903
  19. CARBOPLATIN [Suspect]
     Active Substance: CARBOPLATIN
     Indication: Papillary serous endometrial carcinoma
     Dates: start: 20240827, end: 20240827
  20. CARBOPLATIN [Suspect]
     Active Substance: CARBOPLATIN
     Indication: Papillary serous endometrial carcinoma
     Dates: start: 20240813, end: 20240813
  21. CARBOPLATIN [Suspect]
     Active Substance: CARBOPLATIN
     Indication: Papillary serous endometrial carcinoma
     Dates: start: 20240723, end: 20240723
  22. CARBOPLATIN [Suspect]
     Active Substance: CARBOPLATIN
     Indication: Papillary serous endometrial carcinoma
     Dates: start: 20240716, end: 20240716
  23. CARBOPLATIN [Suspect]
     Active Substance: CARBOPLATIN
     Indication: Papillary serous endometrial carcinoma
     Dates: start: 20240709, end: 20240709
  24. CARBOPLATIN [Suspect]
     Active Substance: CARBOPLATIN
     Indication: Papillary serous endometrial carcinoma
     Dates: start: 20240625, end: 20240625

REACTIONS (1)
  - Myocarditis [Recovering/Resolving]

NARRATIVE: CASE EVENT DATE: 20241004
